FAERS Safety Report 6644380-5 (Version None)
Quarter: 2010Q1

REPORT INFORMATION
  Report Type: 
  Country: None (occurrence: None)
  Receive Date: 20100319
  Receipt Date: 20100319
  Transmission Date: 20100710
  Serious: No
  Sender: FDA-Public Use
  Company Number: None

PATIENT
  Sex: Male

DRUGS (1)
  1. PREDNISONE [Suspect]
     Indication: ASTHMA

REACTIONS (2)
  - LOWER LIMB FRACTURE [None]
  - OSTEOPENIA [None]
